FAERS Safety Report 11754607 (Version 2)
Quarter: 2016Q1

REPORT INFORMATION
  Report Type: Spontaneous
  Country: PE (occurrence: PE)
  Receive Date: 20151119
  Receipt Date: 20160126
  Transmission Date: 20160525
  Serious: Yes (Other)
  Sender: FDA-Public Use
  Company Number: PE-PFIZER INC-2015388920

PATIENT
  Age: 68 Year
  Sex: Female

DRUGS (1)
  1. XANAX [Suspect]
     Active Substance: ALPRAZOLAM
     Dosage: UNK

REACTIONS (5)
  - Feeling of despair [Unknown]
  - Fatigue [Unknown]
  - Anxiety [Unknown]
  - Blood pressure increased [Unknown]
  - Drug dependence [Unknown]
